FAERS Safety Report 22364025 (Version 2)
Quarter: 2023Q2

REPORT INFORMATION
  Report Type: Spontaneous
  Country: US (occurrence: US)
  Receive Date: 20230525
  Receipt Date: 20230529
  Transmission Date: 20230722
  Serious: No
  Sender: FDA-Public Use
  Company Number: US-AMGEN-USASP2023089258

PATIENT
  Age: 78 Year
  Sex: Female
  Weight: 69.841 kg

DRUGS (2)
  1. REPATHA [Suspect]
     Active Substance: EVOLOCUMAB
     Indication: Hypercholesterolaemia
     Dosage: 140 MILLIGRAM, TWICE IN A MONTH
     Route: 058
     Dates: start: 20221003
  2. REPATHA [Suspect]
     Active Substance: EVOLOCUMAB
     Indication: Dyslipidaemia
     Dosage: UNK
     Route: 058

REACTIONS (5)
  - Device difficult to use [Unknown]
  - Pain in extremity [Unknown]
  - Pruritus [Unknown]
  - Injection site swelling [Unknown]
  - Back pain [Unknown]

NARRATIVE: CASE EVENT DATE: 20221121
